FAERS Safety Report 12834790 (Version 3)
Quarter: 2018Q3

REPORT INFORMATION
  Report Type: Spontaneous
  Country: JP (occurrence: JP)
  Receive Date: 20161010
  Receipt Date: 20180716
  Transmission Date: 20181010
  Serious: Yes (Death, Life-Threatening, Hospitalization, Other)
  Sender: FDA-Public Use
  Company Number: JP-PFIZER INC-2016454062

PATIENT
  Age: 69 Year
  Sex: Male

DRUGS (6)
  1. AXITINIB [Suspect]
     Active Substance: AXITINIB
     Dosage: 10 MG, DAILY
     Route: 048
     Dates: start: 20140305
  2. AXITINIB [Suspect]
     Active Substance: AXITINIB
     Dosage: 6 MG, DAILY
     Route: 048
     Dates: start: 20140514, end: 20160310
  3. AXITINIB [Suspect]
     Active Substance: AXITINIB
     Dosage: 14 MG, DAILY
     Route: 048
     Dates: start: 20140402
  4. AXITINIB [Suspect]
     Active Substance: AXITINIB
     Indication: RENAL CELL CARCINOMA RECURRENT
     Dosage: 6 MG, DAILY
     Route: 048
     Dates: start: 20140226
  5. AXITINIB [Suspect]
     Active Substance: AXITINIB
     Dosage: 12 MG, DAILY
     Route: 048
     Dates: start: 20140312
  6. AXITINIB [Suspect]
     Active Substance: AXITINIB
     Dosage: 10 MG, DAILY
     Route: 048
     Dates: start: 20140415

REACTIONS (2)
  - Proteinuria [Recovering/Resolving]
  - Nephrotic syndrome [Recovering/Resolving]

NARRATIVE: CASE EVENT DATE: 20141111
